FAERS Safety Report 6363573-8 (Version None)
Quarter: 2009Q3

REPORT INFORMATION
  Report Type: 
  Country: None (occurrence: None)
  Receive Date: 20090919
  Receipt Date: 20090701
  Transmission Date: 20100115
  Serious: No
  Sender: FDA-Public Use
  Company Number: US-ABBOTT-09P-163-0583085-00

PATIENT
  Sex: Female
  Weight: 63.56 kg

DRUGS (14)
  1. HUMIRA [Suspect]
     Indication: CROHN'S DISEASE
     Route: 058
     Dates: start: 20090501
  2. PREDNISONE [Concomitant]
     Indication: CROHN'S DISEASE
     Dosage: 5 MG, DECREASING DOSE
     Route: 048
     Dates: start: 20090201
  3. ACIPHEX [Concomitant]
     Indication: CROHN'S DISEASE
     Route: 048
  4. POTASSIUM CHLORIDE [Concomitant]
     Indication: PROPHYLAXIS
     Route: 048
  5. IMURAN [Concomitant]
     Indication: CROHN'S DISEASE
     Route: 048
  6. ALLOPURINOL [Concomitant]
     Indication: PROPHYLAXIS
     Route: 048
  7. NORTRIPTYLINE HCL [Concomitant]
     Indication: PROPHYLAXIS OF NAUSEA AND VOMITING
     Route: 048
  8. PROZAC [Concomitant]
     Indication: DEPRESSION
     Route: 048
  9. TRIVORA-21 [Concomitant]
     Indication: CONTRACEPTION
     Route: 048
  10. GI COCKTAIL (MAALOX, LIDOCAINE ETC) [Concomitant]
     Indication: MOUTH ULCERATION
     Route: 048
  11. LORTAB [Concomitant]
     Indication: PAIN
     Dosage: ELIXIR
     Route: 048
  12. PREDNISONE DROPS [Concomitant]
     Indication: UVEITIS
     Dosage: 1 OS, 2 IN 1 WEEKS
     Route: 047
  13. XANAX [Concomitant]
     Indication: INSOMNIA
     Route: 048
  14. TRIAMCIN/ORA BASE DENTAL PASTE [Concomitant]
     Indication: MOUTH ULCERATION
     Route: 061

REACTIONS (1)
  - WRONG TECHNIQUE IN DRUG USAGE PROCESS [None]
